FAERS Safety Report 18864175 (Version 1)
Quarter: 2021Q1

REPORT INFORMATION
  Report Type: Spontaneous
  Country: US (occurrence: US)
  Receive Date: 20210208
  Receipt Date: 20210208
  Transmission Date: 20210420
  Serious: Yes (Death)
  Sender: FDA-Public Use
  Company Number: None

PATIENT
  Age: 86 Year
  Sex: Male

DRUGS (1)
  1. RETACRIT [Suspect]
     Active Substance: EPOETIN ALFA-EPBX
     Indication: CHRONIC KIDNEY DISEASE
     Dosage: ?          OTHER DOSE:2,000 UNITS;OTHER FREQUENCY:Q8WKS;?
     Route: 058
     Dates: start: 20201107, end: 202011

REACTIONS (1)
  - Death [None]

NARRATIVE: CASE EVENT DATE: 202011
